FAERS Safety Report 10192264 (Version 2)
Quarter: 2014Q2

REPORT INFORMATION
  Report Type: Spontaneous
  Country: BR (occurrence: BR)
  Receive Date: 20140523
  Receipt Date: 20140523
  Transmission Date: 20141212
  Serious: Yes (Hospitalization)
  Sender: FDA-Public Use
  Company Number: BR-009507513-1404BRA014905

PATIENT
  Age: 64 Year
  Sex: Male

DRUGS (3)
  1. VICTRELIS [Suspect]
     Indication: HEPATITIS C
     Dosage: 800 MG, Q8H
     Route: 048
     Dates: start: 20130712, end: 201403
  2. INTERFERON (UNSPECIFIED) [Concomitant]
     Indication: HEPATITIS C
     Dosage: UNK
     Route: 058
  3. RIBAVIRIN (NON-MERCK) [Concomitant]
     Indication: HEPATITIS C
     Dosage: UNK
     Route: 048

REACTIONS (7)
  - Herpes zoster [Recovered/Resolved]
  - Decreased immune responsiveness [Unknown]
  - Retching [Recovered/Resolved]
  - Malaise [Recovered/Resolved]
  - Hypersensitivity [Unknown]
  - Red blood cell count decreased [Recovered/Resolved]
  - Packed red blood cell transfusion [Unknown]
